FAERS Safety Report 10184084 (Version 1)
Quarter: 2014Q2

REPORT INFORMATION
  Report Type: Spontaneous
  Country: US (occurrence: US)
  Receive Date: 20140520
  Receipt Date: 20140520
  Transmission Date: 20141212
  Serious: No
  Sender: FDA-Public Use
  Company Number: US-ASTRAZENECA-2013SE63709

PATIENT
  Age: 74 Year
  Sex: Male
  Weight: 81.6 kg

DRUGS (5)
  1. BUDESONIDE [Suspect]
     Indication: CROHN^S DISEASE
     Route: 048
     Dates: start: 2012, end: 2013
  2. NEXIUM [Suspect]
     Route: 048
  3. LISINOPRIL [Suspect]
     Indication: BLOOD PRESSURE ABNORMAL
     Route: 048
  4. PREDNISOLONE [Suspect]
     Dates: end: 20130814
  5. FINASTERIDE [Concomitant]
     Indication: REPRODUCTIVE TRACT DISORDER
     Route: 048

REACTIONS (5)
  - Feeling abnormal [Not Recovered/Not Resolved]
  - Abdominal pain upper [Not Recovered/Not Resolved]
  - Abdominal discomfort [Not Recovered/Not Resolved]
  - Intentional product misuse [Unknown]
  - Drug ineffective [Unknown]
